FAERS Safety Report 21495707 (Version 1)
Quarter: 2022Q4

REPORT INFORMATION
  Report Type: Spontaneous
  Country: US (occurrence: US)
  Receive Date: 20221022
  Receipt Date: 20221022
  Transmission Date: 20230112
  Serious: No
  Sender: FDA-Public Use
  Company Number: US-ELI_LILLY_AND_COMPANY-US202210009353

PATIENT

DRUGS (3)
  1. EMGALITY [Suspect]
     Active Substance: GALCANEZUMAB-GNLM
     Indication: Prophylaxis
     Dosage: 120 MG, UNKNOWN
     Route: 065
  2. NURTEC ODT [Suspect]
     Active Substance: RIMEGEPANT SULFATE
     Indication: Product used for unknown indication
     Dosage: UNK UNK, UNKNOWN
     Route: 065
  3. UBRELVY [Suspect]
     Active Substance: UBROGEPANT
     Indication: Prophylaxis
     Dosage: UNK UNK, UNKNOWN
     Route: 065

REACTIONS (1)
  - Constipation [Unknown]
